FAERS Safety Report 14197567 (Version 2)
Quarter: 2018Q2

REPORT INFORMATION
  Report Type: Report from Study
  Country: JP (occurrence: JP)
  Receive Date: 20171116
  Receipt Date: 20180516
  Transmission Date: 20180711
  Serious: Yes (Life-Threatening, Hospitalization)
  Sender: FDA-Public Use
  Company Number: JP-B.I. PHARMACEUTICALS,INC./RIDGEFIELD-2017-NB-006182

PATIENT
  Age: 76 Year
  Sex: Male
  Weight: 51.5 kg

DRUGS (7)
  1. BAYASPIRIN [Suspect]
     Active Substance: ASPIRIN
     Indication: CEREBRAL INFARCTION
     Route: 048
     Dates: start: 20171010, end: 20171024
  2. SIGMART [Concomitant]
     Active Substance: NICORANDIL
     Indication: PRODUCT USED FOR UNKNOWN INDICATION
     Route: 065
  3. PRAZAXA [Suspect]
     Active Substance: DABIGATRAN ETEXILATE MESYLATE
     Indication: ATRIAL FIBRILLATION
     Route: 048
     Dates: start: 20140508, end: 20171024
  4. LASIX [Concomitant]
     Active Substance: FUROSEMIDE
     Indication: PRODUCT USED FOR UNKNOWN INDICATION
     Route: 065
  5. MAINTATE [Concomitant]
     Active Substance: BISOPROLOL FUMARATE
     Indication: PRODUCT USED FOR UNKNOWN INDICATION
     Route: 065
  6. URIADEC [Concomitant]
     Active Substance: TOPIROXOSTAT
     Indication: PRODUCT USED FOR UNKNOWN INDICATION
     Route: 065
  7. RADICUT [Concomitant]
     Active Substance: EDARAVONE
     Indication: CEREBRAL INFARCTION
     Route: 065

REACTIONS (2)
  - Cerebellar haemorrhage [Unknown]
  - Cerebral infarction [Unknown]

NARRATIVE: CASE EVENT DATE: 20171007
